FAERS Safety Report 6550523-4 (Version None)
Quarter: 2010Q1

REPORT INFORMATION
  Report Type: 
  Country: None (occurrence: None)
  Receive Date: 20100125
  Receipt Date: 20100114
  Transmission Date: 20100710
  Serious: Yes (Hospitalization)
  Sender: FDA-Public Use
  Company Number: B0625942A

PATIENT
  Age: 30 Year
  Sex: Female

DRUGS (2)
  1. PAROXETINE HYDROCHLORIDE [Suspect]
  2. ETHANOL [Suspect]

REACTIONS (9)
  - AFFECT LABILITY [None]
  - DISINHIBITION [None]
  - HYPOMANIA [None]
  - INCREASED APPETITE [None]
  - IRRITABILITY [None]
  - LIBIDO INCREASED [None]
  - OVERDOSE [None]
  - SLEEP DISORDER [None]
  - SUICIDE ATTEMPT [None]
